FAERS Safety Report 9228005 (Version 3)
Quarter: 2013Q2

REPORT INFORMATION
  Report Type: Report from Study
  Country: BE (occurrence: BE)
  Receive Date: 20130412
  Receipt Date: 20130618
  Transmission Date: 20140414
  Serious: Yes (Death, Other)
  Sender: FDA-Public Use
  Company Number: BE-GENZYME-CLOF-1002584

PATIENT
  Age: 56 Year
  Sex: Female
  Weight: 85 kg

DRUGS (12)
  1. CIPROFLOXACINE [Concomitant]
     Indication: INFECTION PROPHYLAXIS
     Dosage: 1000 MG, UNK
     Route: 048
     Dates: start: 20130320
  2. ZOVIRAX [Concomitant]
     Indication: INFECTION PROPHYLAXIS
     Dosage: 1200 MG, UNK
     Route: 048
     Dates: start: 20130320
  3. EVOLTRA [Suspect]
     Indication: ACUTE MYELOID LEUKAEMIA
     Dosage: 19.7 MG, INDUCTION 1
     Route: 042
     Dates: start: 20130320, end: 20130324
  4. IDARUBICIN [Suspect]
     Indication: ACUTE MYELOID LEUKAEMIA
     Dosage: 24 MG, INDUCTION 1
     Route: 042
     Dates: start: 20130320, end: 20130322
  5. CYTARABINE [Suspect]
     Indication: ACUTE MYELOID LEUKAEMIA
     Dosage: 394 MG, INDUCTION 1
     Route: 042
     Dates: start: 20130320, end: 20130326
  6. TENORMIN [Concomitant]
     Indication: HYPERTENSION
     Dosage: 25 MG, UNK
     Route: 048
     Dates: start: 201302
  7. COPERINDO RP [Concomitant]
     Indication: HYPERTENSION
     Dosage: 25 MG, UNK
     Route: 048
     Dates: start: 201302
  8. CYMBALTA [Concomitant]
     Indication: DEPRESSION
     Dosage: 60 MG, UNK
     Route: 048
     Dates: start: 2010
  9. PANTOMED [Concomitant]
     Indication: PROPHYLAXIS AGAINST GASTROINTESTINAL ULCER
     Dosage: 40 MG, UNK
     Route: 048
     Dates: start: 2002
  10. FOLAIRT [Concomitant]
     Indication: POLYARTHRITIS
     Dosage: 4 MG, UNK
     Route: 048
     Dates: start: 2006
  11. VITAMIN D [Concomitant]
     Indication: POLYARTHRITIS
     Dosage: 25000 IU, UNK
     Route: 048
     Dates: start: 20110714
  12. CALCIUM FORTE [Concomitant]
     Indication: POLYARTHRITIS
     Dosage: 500 MG, UNK
     Route: 048
     Dates: start: 20110714

REACTIONS (5)
  - Enteritis [Fatal]
  - Melaena [Fatal]
  - Febrile neutropenia [Fatal]
  - Multi-organ failure [Fatal]
  - Tonsillitis [Fatal]
